FAERS Safety Report 7202152-7 (Version None)
Quarter: 2010Q4

REPORT INFORMATION
  Report Type: 
  Country: None (occurrence: None)
  Receive Date: 20101229
  Receipt Date: 20101216
  Transmission Date: 20110411
  Serious: Yes (Other)
  Sender: FDA-Public Use
  Company Number: PHHY2010DE87287

PATIENT
  Sex: Female

DRUGS (6)
  1. ZOMETA [Suspect]
     Dosage: UNK
     Route: 042
     Dates: end: 20090701
  2. METOPROLOL [Concomitant]
  3. LEVOTHYROXINE SODIUM [Concomitant]
  4. FRAGMIN [Concomitant]
  5. BELOC ZOK [Concomitant]
  6. EUTHYROX [Concomitant]

REACTIONS (3)
  - OSTEONECROSIS OF JAW [None]
  - SURGERY [None]
  - TOOTH EXTRACTION [None]
